FAERS Safety Report 6793869-7 (Version None)
Quarter: 2010Q2

REPORT INFORMATION
  Report Type: 
  Country: None (occurrence: None)
  Receive Date: 20100624
  Receipt Date: 20090324
  Transmission Date: 20101027
  Serious: Yes (Other)
  Sender: FDA-Public Use
  Company Number: US-PFIZER INC-2009160170

PATIENT
  Sex: Male
  Weight: 69.841 kg

DRUGS (4)
  1. GEODON [Suspect]
     Indication: BIPOLAR I DISORDER
     Dosage: 40 MG, UNK
     Dates: start: 20081216, end: 20090101
  2. BENADRYL [Suspect]
     Indication: TRISMUS
     Dosage: UNK
     Dates: start: 20090120
  3. TRAZODONE [Concomitant]
     Dosage: UNK
     Dates: start: 20081216
  4. CELEXA [Concomitant]
     Dosage: 40 MG, UNK
     Dates: start: 20081209

REACTIONS (3)
  - DYSTONIA [None]
  - GASTRIC DISORDER [None]
  - TRISMUS [None]
